FAERS Safety Report 19616022 (Version 1)
Quarter: 2021Q3

REPORT INFORMATION
  Report Type: Report from Study
  Country: IT (occurrence: IT)
  Receive Date: 20210727
  Receipt Date: 20210727
  Transmission Date: 20211014
  Serious: Yes (Death)
  Sender: FDA-Public Use
  Company Number: IT-PFIZER INC-202100917821

PATIENT

DRUGS (6)
  1. GRANULOCYTE COLONY STIMULATING FACTOR [Concomitant]
     Active Substance: GRANULOCYTE COLONY-STIMULATING FACTOR NOS
     Dosage: 5 MG/KG, CYCLIC
  2. DOXORUBICIN HCL [Suspect]
     Active Substance: DOXORUBICIN HYDROCHLORIDE
     Indication: NEUROBLASTOMA
     Dosage: 25 MG/M2, DAILY (3 DAYS, HIGH?DOSE, FOR A TOTAL OF FIVE COURSES, WITHIN 110 DAYS)
  3. CYCLOPHOSPHAMIDE. [Suspect]
     Active Substance: CYCLOPHOSPHAMIDE
     Indication: NEUROBLASTOMA
     Dosage: 70 MG/KG, DAILY (2 DAYS, HIGH?DOSE, FOR A TOTAL OF FIVE COURSES, WITHIN 110 DAYS)
  4. ETOPOSIDE. [Suspect]
     Active Substance: ETOPOSIDE
     Indication: NEUROBLASTOMA
     Dosage: 200 MG/M2, DAILY (ON 3 DAYS, HIGH?DOSE, FOR A TOTAL OF FIVE COURSES, WITHIN 110 DAYS)
  5. CISPLATIN. [Suspect]
     Active Substance: CISPLATIN
     Indication: NEUROBLASTOMA
     Dosage: 50 MG/M2, DAILY (4 DAYS, HIGH?DOSE, FOR A TOTAL OF FIVE COURSES, WITHIN 110 DAYS)
  6. VINCRISTINE SULFATE. [Suspect]
     Active Substance: VINCRISTINE SULFATE
     Indication: NEUROBLASTOMA
     Dosage: 0.022 MG/KG, DAILY (3 DAYS, HIGH?DOSE, FOR A TOTAL OF FIVE COURSES, WITHIN 110 DAYS)

REACTIONS (1)
  - Infection [Fatal]
